FAERS Safety Report 20687342 (Version 1)
Quarter: 2022Q2

REPORT INFORMATION
  Report Type: Spontaneous
  Country: JP (occurrence: JP)
  Receive Date: 20220408
  Receipt Date: 20220408
  Transmission Date: 20220721
  Serious: Yes (Other)
  Sender: FDA-Public Use
  Company Number: JP-TEVA-2020-JP-007081J

PATIENT
  Sex: Male

DRUGS (3)
  1. ALPRAZOLAM [Suspect]
     Active Substance: ALPRAZOLAM
     Indication: Dizziness
     Route: 048
     Dates: start: 2014
  2. ALPRAZOLAM [Suspect]
     Active Substance: ALPRAZOLAM
     Indication: Dizziness
     Dosage: .2 MILLIGRAM DAILY;
     Route: 048
     Dates: start: 202008, end: 20201109
  3. AMLODIPINE [Suspect]
     Active Substance: AMLODIPINE BESYLATE
     Indication: Product used for unknown indication
     Dosage: 5 MILLIGRAM DAILY;
     Route: 065
     Dates: start: 20201109

REACTIONS (12)
  - Arrhythmia [Unknown]
  - Head discomfort [Unknown]
  - Heart rate decreased [Unknown]
  - Heat illness [Unknown]
  - Blood pressure increased [Recovering/Resolving]
  - Vertigo [Unknown]
  - Hypotension [Unknown]
  - Dizziness [Recovered/Resolved]
  - Dizziness [Recovered/Resolved]
  - Inappropriate schedule of product administration [Unknown]
  - Product use issue [Unknown]
  - Wrong technique in product usage process [Unknown]

NARRATIVE: CASE EVENT DATE: 20200801
